FAERS Safety Report 20349415 (Version 1)
Quarter: 2022Q1

REPORT INFORMATION
  Report Type: Spontaneous
  Country: None (occurrence: CH)
  Receive Date: 20220119
  Receipt Date: 20220119
  Transmission Date: 20220423
  Serious: Yes (Hospitalization)
  Sender: FDA-Public Use
  Company Number: CH-Diagnostic Green GmbH-2124078

PATIENT
  Sex: Female

DRUGS (15)
  1. INDOCYANINE GREEN [Suspect]
     Active Substance: INDOCYANINE GREEN
     Route: 040
  2. CEFUROXIME [Concomitant]
     Active Substance: CEFUROXIME
  3. CLONIDINE [Concomitant]
     Active Substance: CLONIDINE
  4. DEXAMETHASONE [Concomitant]
     Active Substance: DEXAMETHASONE
  5. DROPERIDOL [Concomitant]
     Active Substance: DROPERIDOL
  6. KETAMINE HYDROCHLORIDE [Concomitant]
     Active Substance: KETAMINE HYDROCHLORIDE
  7. LIDOCAINE [Concomitant]
     Active Substance: LIDOCAINE
  8. METHYLENE BLUE [Concomitant]
     Active Substance: METHYLENE BLUE
  9. METRONIDAZOLE [Concomitant]
     Active Substance: METRONIDAZOLE
  10. MORPHINE SULFATE [Concomitant]
     Active Substance: MORPHINE SULFATE
  11. ONDANSETRON [Concomitant]
     Active Substance: ONDANSETRON
  12. PROPOFOL [Concomitant]
     Active Substance: PROPOFOL
  13. ROCURONIUM [Concomitant]
     Active Substance: ROCURONIUM BROMIDE
  14. SUFENTA [Concomitant]
     Active Substance: SUFENTANIL CITRATE
  15. SUCCINYLCHOLINE CHLORIDE [Concomitant]
     Active Substance: SUCCINYLCHOLINE CHLORIDE

REACTIONS (2)
  - Liver function test increased [Recovered/Resolved]
  - Thrombocytopenia [Recovered/Resolved]
